FAERS Safety Report 19620260 (Version 1)
Quarter: 2021Q3

REPORT INFORMATION
  Report Type: Spontaneous
  Country: US (occurrence: US)
  Receive Date: 20210728
  Receipt Date: 20210728
  Transmission Date: 20211014
  Serious: No
  Sender: FDA-Public Use
  Company Number: US-ROCHE-2720433

PATIENT
  Sex: Male

DRUGS (12)
  1. XELODA [Suspect]
     Active Substance: CAPECITABINE
     Indication: COLON CANCER
     Dosage: TAKE 4 TABLETS BY MOUTH EVERY 12 HOURS FOR 14 DAYS EVERY 21 DAYS
     Route: 048
     Dates: start: 20200326
  2. ABILIFY [Concomitant]
     Active Substance: ARIPIPRAZOLE
  3. DIVALPROEX SODIUM. [Concomitant]
     Active Substance: DIVALPROEX SODIUM
  4. LAMOTRIGINE. [Concomitant]
     Active Substance: LAMOTRIGINE
  5. ROSUVASTATIN. [Concomitant]
     Active Substance: ROSUVASTATIN
  6. OMEPRAZOLE. [Concomitant]
     Active Substance: OMEPRAZOLE
  7. ARIPIPRAZOLE. [Concomitant]
     Active Substance: ARIPIPRAZOLE
  8. BRILINTA [Concomitant]
     Active Substance: TICAGRELOR
  9. BUSPIRONE HCL [Concomitant]
     Active Substance: BUSPIRONE HYDROCHLORIDE
  10. FERROUS SULFATE. [Concomitant]
     Active Substance: FERROUS SULFATE
  11. LISINOPRIL. [Concomitant]
     Active Substance: LISINOPRIL
  12. ISOSORBIDE MONONITRATE. [Concomitant]
     Active Substance: ISOSORBIDE MONONITRATE

REACTIONS (1)
  - Diarrhoea [Not Recovered/Not Resolved]
